FAERS Safety Report 4659878-9 (Version None)
Quarter: 2005Q2

REPORT INFORMATION
  Report Type: 
  Country: None (occurrence: None)
  Receive Date: 20050502
  Receipt Date: 20050121
  Transmission Date: 20051028
  Serious: Yes (Death)
  Sender: FDA-Public Use
  Company Number: US109367

PATIENT
  Age: 69 Year
  Sex: Male

DRUGS (1)
  1. PROCRIT [Suspect]
     Indication: RENAL FAILURE CHRONIC
     Dosage: 60000 IU, 1 IN 1 WEEKS, SC
     Route: 058

REACTIONS (2)
  - DISEASE PROGRESSION [None]
  - RENAL FAILURE CHRONIC [None]
